FAERS Safety Report 14130699 (Version 3)
Quarter: 2018Q2

REPORT INFORMATION
  Report Type: Report from Study
  Country: VN (occurrence: VN)
  Receive Date: 20171026
  Receipt Date: 20180411
  Transmission Date: 20180711
  Serious: Yes (Other)
  Sender: FDA-Public Use
  Company Number: VN-ASTELLAS-2017US043229

PATIENT
  Sex: Female

DRUGS (4)
  1. ERLOTINIB [Suspect]
     Active Substance: ERLOTINIB
     Indication: LUNG NEOPLASM MALIGNANT
     Route: 048
     Dates: start: 2015
  2. ERLOTINIB [Suspect]
     Active Substance: ERLOTINIB
     Dosage: 100 MG, ONCE DAILY (25 DAYS FROM 19/OCT/2017)
     Route: 048
     Dates: start: 20171019
  3. ERLOTINIB [Suspect]
     Active Substance: ERLOTINIB
     Dosage: 100 MG, ONCE DAILY (IN 14 DAYS FROM 03/JUL/2017)
     Route: 048
     Dates: start: 20170703
  4. ERLOTINIB [Suspect]
     Active Substance: ERLOTINIB
     Dosage: 100 MG, ONCE DAILY (24 DAYS FROM 25/SEP/2017)
     Route: 048
     Dates: start: 20170925

REACTIONS (1)
  - Seborrhoeic dermatitis [Recovering/Resolving]
